FAERS Safety Report 8048255-9 (Version None)
Quarter: 2011Q4

REPORT INFORMATION
  Report Type: 
  Country: None (occurrence: None)
  Receive Date: 20111209
  Receipt Date: 20110923
  Transmission Date: 20120403
  Serious: No
  Sender: FDA-Public Use
  Company Number: 2011SP045253

PATIENT
  Age: 61 Year
  Sex: Female

DRUGS (5)
  1. REBETOL [Suspect]
     Indication: PRODUCT USED FOR UNKNOWN INDICATION
  2. ESTRADERM [Concomitant]
  3. HERBAL SUPPLEMENT [Concomitant]
  4. PEG-INTRON [Suspect]
     Indication: HEPATITIS C
     Dosage: ;QW;SC
     Route: 058
     Dates: start: 20110829
  5. VICTRELIS [Suspect]
     Indication: PRODUCT USED FOR UNKNOWN INDICATION

REACTIONS (4)
  - DIARRHOEA [None]
  - VOMITING [None]
  - INCORRECT STORAGE OF DRUG [None]
  - NAUSEA [None]
